FAERS Safety Report 7981265-6 (Version None)
Quarter: 2011Q4

REPORT INFORMATION
  Report Type: 
  Country: None (occurrence: None)
  Receive Date: 20111215
  Receipt Date: 20111208
  Transmission Date: 20120403
  Serious: No
  Sender: FDA-Public Use
  Company Number: US-PFIZER INC-2011300901

PATIENT
  Sex: Female
  Weight: 63.492 kg

DRUGS (5)
  1. ALPRAZOLAM [Suspect]
     Indication: INSOMNIA
  2. PROTONIX [Concomitant]
     Indication: GASTROOESOPHAGEAL REFLUX DISEASE
     Dosage: 40 MG, 1X/DAY
  3. ALPRAZOLAM [Suspect]
  4. ALPRAZOLAM [Suspect]
     Dosage: 0.5 MG, 2X/DAY
     Route: 048
  5. ALPRAZOLAM [Suspect]
     Indication: ANXIETY
     Dosage: 0.5 MG, 2X/DAY
     Route: 048

REACTIONS (1)
  - DYSPEPSIA [None]
